FAERS Safety Report 8176972-9 (Version None)
Quarter: 2012Q1

REPORT INFORMATION
  Report Type: 
  Country: None (occurrence: None)
  Receive Date: 20120301
  Receipt Date: 20120220
  Transmission Date: 20120608
  Serious: Yes (Other)
  Sender: FDA-Public Use
  Company Number: CA-NAPPMUNDI-DEU-2012-0008688

PATIENT
  Age: 52 Year
  Sex: Male

DRUGS (4)
  1. MORPHINE SULFATE [Suspect]
     Indication: POSTOPERATIVE ANALGESIA
     Dosage: 10 MG, SEE TEXT
     Route: 042
  2. HYDROMORPHONE HCL [Suspect]
     Indication: BACK PAIN
     Dosage: 12 MG, DAILY
     Route: 037
  3. HYDROMORPHONE HCL [Suspect]
     Indication: RADICULAR PAIN
     Dosage: 2.5 MG, DAILY
     Route: 037
  4. HYDROMORPHONE HCL [Suspect]
     Indication: POSTOPERATIVE ANALGESIA

REACTIONS (2)
  - MYOCLONUS [None]
  - HYPERAESTHESIA [None]
